FAERS Safety Report 4434964-7 (Version None)
Quarter: 2004Q3

REPORT INFORMATION
  Report Type: 
  Country: None (occurrence: None)
  Receive Date: 20040827
  Receipt Date: 20040820
  Transmission Date: 20050211
  Serious: Yes (Hospitalization)
  Sender: FDA-Public Use
  Company Number: 200413140FR

PATIENT
  Age: 76 Year
  Sex: Male
  Weight: 64 kg

DRUGS (6)
  1. HEMI-DAONIL [Suspect]
     Indication: DIABETES MELLITUS NON-INSULIN-DEPENDENT
     Route: 048
     Dates: start: 20030214, end: 20040307
  2. CELLCEPT [Suspect]
     Indication: GLOMERULONEPHRITIS MEMBRANOPROLIFERATIVE
     Dosage: DOSE UNIT: UNITS
     Route: 048
     Dates: start: 20040430, end: 20040518
  3. LASIX [Concomitant]
     Route: 048
     Dates: start: 20030201
  4. SYMBICORT [Concomitant]
     Route: 055
  5. AMLOR [Concomitant]
     Route: 048
     Dates: start: 20030201
  6. COZAAR [Concomitant]
     Route: 048
     Dates: start: 20030201

REACTIONS (15)
  - ACIDOSIS [None]
  - ANAEMIA [None]
  - ANOREXIA [None]
  - BLOOD CALCIUM INCREASED [None]
  - BLOOD PHOSPHORUS INCREASED [None]
  - DIALYSIS [None]
  - GLOMERULONEPHRITIS MEMBRANOPROLIFERATIVE [None]
  - METABOLIC DISORDER [None]
  - NAUSEA [None]
  - OEDEMA PERIPHERAL [None]
  - RENAL FAILURE ACUTE [None]
  - RENAL INTERSTITIAL FIBROSIS [None]
  - RENAL TUBULAR NECROSIS [None]
  - SWELLING FACE [None]
  - WEIGHT INCREASED [None]
